FAERS Safety Report 22860652 (Version 4)
Quarter: 2024Q1

REPORT INFORMATION
  Report Type: Spontaneous
  Country: US (occurrence: US)
  Receive Date: 20230824
  Receipt Date: 20240207
  Transmission Date: 20240410
  Serious: No
  Sender: FDA-Public Use
  Company Number: US-PFIZER INC-PV202300143110

PATIENT
  Age: 79 Year
  Sex: Female
  Weight: 99.32 kg

DRUGS (1)
  1. IBRANCE [Suspect]
     Active Substance: PALBOCICLIB
     Indication: Neoplasm malignant
     Dosage: 100 MG, 21 DAYS ON 7 DAYS OFF

REACTIONS (1)
  - Hypoacusis [Unknown]
